FAERS Safety Report 5890766-6 (Version None)
Quarter: 2008Q3

REPORT INFORMATION
  Report Type: 
  Country: None (occurrence: None)
  Receive Date: 20080922
  Receipt Date: 20080912
  Transmission Date: 20090109
  Serious: Yes (Other)
  Sender: FDA-Public Use
  Company Number: US-BAYER-200813745BCC

PATIENT
  Sex: Female

DRUGS (1)
  1. ALKA SELTZER PLUS SPARKLING COLD ORIGINAL [Suspect]
     Indication: NASOPHARYNGITIS
     Route: 048
     Dates: start: 20080911

REACTIONS (1)
  - BLOOD GLUCOSE INCREASED [None]
